FAERS Safety Report 7596913-2 (Version None)
Quarter: 2011Q3

REPORT INFORMATION
  Report Type: 
  Country: None (occurrence: None)
  Receive Date: 20110708
  Receipt Date: 20110701
  Transmission Date: 20111222
  Serious: Yes (Hospitalization, Other)
  Sender: FDA-Public Use
  Company Number: GB-PFIZER INC-2011148710

PATIENT
  Age: 54 Year
  Sex: Male
  Weight: 65 kg

DRUGS (3)
  1. LISINOPRIL [Concomitant]
     Indication: HYPERTENSION
     Dosage: 20 MG, UNK
     Route: 048
  2. TAMSULOSIN [Concomitant]
     Indication: BENIGN PROSTATIC HYPERPLASIA
     Dosage: 400 UG, UNK
     Route: 048
     Dates: start: 20110501
  3. FESOTERODINE [Suspect]
     Indication: POLLAKIURIA
     Dosage: 8 MG, UNK
     Route: 048
     Dates: start: 20110606, end: 20110608

REACTIONS (3)
  - TACHYCARDIA [None]
  - ANGINA PECTORIS [None]
  - PALPITATIONS [None]
